FAERS Safety Report 20469710 (Version 1)
Quarter: 2022Q1

REPORT INFORMATION
  Report Type: Spontaneous
  Country: ES (occurrence: ES)
  Receive Date: 20220214
  Receipt Date: 20220214
  Transmission Date: 20220424
  Serious: Yes (Other)
  Sender: FDA-Public Use
  Company Number: ES-JUBILANT CADISTA PHARMACEUTICALS-2022JUB00022

PATIENT
  Age: 67 Year
  Sex: Male

DRUGS (6)
  1. SPIRONOLACTONE [Suspect]
     Active Substance: SPIRONOLACTONE
     Indication: Diuretic therapy
     Dosage: 25 MG, 1X/DAY
     Route: 065
     Dates: start: 2016
  2. SPIRONOLACTONE [Suspect]
     Active Substance: SPIRONOLACTONE
     Indication: Cardiac failure
  3. ABIRATERONE [Suspect]
     Active Substance: ABIRATERONE
     Indication: Prostatic specific antigen increased
     Dosage: 1000 MG, 1X/DAY
     Route: 065
     Dates: start: 201605
  4. ABIRATERONE [Suspect]
     Active Substance: ABIRATERONE
     Indication: Bone lesion
  5. PREDNISONE [Concomitant]
     Active Substance: PREDNISONE
     Indication: Prostatic specific antigen increased
     Dosage: 5 MG, 2X/DAY, EVERY 12 HOURS FASTING
     Route: 065
     Dates: start: 201605
  6. PREDNISONE [Concomitant]
     Active Substance: PREDNISONE
     Indication: Bone lesion

REACTIONS (3)
  - Drug interaction [Unknown]
  - Prostatic specific antigen increased [Unknown]
  - Prostate cancer [Unknown]
